FAERS Safety Report 8434285-1 (Version None)
Quarter: 2012Q2

REPORT INFORMATION
  Report Type: 
  Country: None (occurrence: None)
  Receive Date: 20120613
  Receipt Date: 20120607
  Transmission Date: 20120825
  Serious: Yes (Hospitalization)
  Sender: FDA-Public Use
  Company Number: US-ROXANE LABORATORIES, INC.-2012-RO-01377RO

PATIENT

DRUGS (1)
  1. BUPRENORPHINE HCL [Suspect]

REACTIONS (1)
  - DRUG ADMINISTERED TO PATIENT OF INAPPROPRIATE AGE [None]
